FAERS Safety Report 9420176 (Version 1)
Quarter: 2013Q3

REPORT INFORMATION
  Report Type: Spontaneous
  Country: FR (occurrence: FR)
  Receive Date: 20130725
  Receipt Date: 20130725
  Transmission Date: 20140515
  Serious: Yes (Life-Threatening)
  Sender: FDA-Public Use
  Company Number: FR-ASTRAZENECA-2013SE55097

PATIENT
  Age: 4688 Week
  Sex: Female

DRUGS (4)
  1. XEROQUEL [Suspect]
     Route: 048
     Dates: start: 20130617, end: 20130618
  2. RISPERDAL [Suspect]
     Route: 048
     Dates: start: 20130613, end: 20130613
  3. RISPERDAL [Suspect]
     Route: 048
     Dates: start: 20130614, end: 20130617
  4. COAPROVEL [Concomitant]
     Route: 048

REACTIONS (1)
  - Atrial fibrillation [Recovered/Resolved]
